FAERS Safety Report 8418807 (Version 2)
Quarter: 2012Q4

REPORT INFORMATION
  Report Type: Report from Study
  Country: US (occurrence: US)
  Receive Date: 20120221
  Receipt Date: 20121012
  Transmission Date: 20130627
  Serious: Yes (Other)
  Sender: FDA-Public Use
  Company Number: US-ROCHE-1039262

PATIENT
  Age: 77 Year
  Sex: Male

DRUGS (14)
  1. RANIBIZUMAB [Suspect]
     Indication: AGE-RELATED MACULAR DEGENERATION
     Route: 050
     Dates: start: 20100311
  2. RANIBIZUMAB [Suspect]
     Route: 050
     Dates: start: 20100112
  3. RANIBIZUMAB [Suspect]
     Route: 050
     Dates: start: 201004
  4. RANIBIZUMAB [Suspect]
     Route: 050
     Dates: start: 201005
  5. RANIBIZUMAB [Suspect]
     Route: 050
     Dates: start: 201006
  6. RANIBIZUMAB [Suspect]
     Route: 050
     Dates: start: 20101006
  7. SIOFOR [Concomitant]
     Dosage: dose 850 OT
     Route: 065
  8. SIMVAHEXAL [Concomitant]
     Dosage: dose 40 OT
     Route: 065
  9. OBSIDAN [Concomitant]
     Dosage: dose 25 OT
     Route: 065
  10. LISIHEXAL [Concomitant]
     Dosage: Dose 2.5 OT
     Route: 065
  11. ACTRAPID PENFILL [Concomitant]
  12. OFTAQUIX [Concomitant]
  13. DEXA-GENTAMICIN [Concomitant]
  14. HYALURONATE SODIUM [Concomitant]

REACTIONS (3)
  - Age-related macular degeneration [Not Recovered/Not Resolved]
  - Retinal scar [Not Recovered/Not Resolved]
  - Retinal haemorrhage [Not Recovered/Not Resolved]
